FAERS Safety Report 20714024 (Version 1)
Quarter: 2022Q2

REPORT INFORMATION
  Report Type: Spontaneous
  Country: US (occurrence: None)
  Receive Date: 20220414
  Receipt Date: 20220414
  Transmission Date: 20220720
  Serious: No
  Sender: FDA-Public Use
  Company Number: None

PATIENT
  Age: 59 Year
  Sex: Female
  Weight: 81.3 kg

DRUGS (1)
  1. INTERFERON [Suspect]
     Active Substance: INTERFERON
     Indication: Hepatitis C
     Dosage: OTHER QUANTITY : UNKNOWN;?FREQUENCY : 3 TIMES A WEEK;?
     Route: 065
     Dates: end: 2015

REACTIONS (2)
  - Drug intolerance [None]
  - Drug ineffective [None]
